FAERS Safety Report 7326703-7 (Version None)
Quarter: 2011Q1

REPORT INFORMATION
  Report Type: 
  Country: None (occurrence: None)
  Receive Date: 20110302
  Receipt Date: 20110225
  Transmission Date: 20110831
  Serious: Yes (Death, Other)
  Sender: FDA-Public Use
  Company Number: US-AMGEN-USASP2010010582

PATIENT
  Age: 95 Year
  Sex: Male
  Weight: 68.027 kg

DRUGS (2)
  1. PROCRIT [Concomitant]
  2. NPLATE [Suspect]
     Indication: IDIOPATHIC THROMBOCYTOPENIC PURPURA
     Dosage: 0.84 A?G/KG, UNK
     Dates: start: 20081212, end: 20100719

REACTIONS (3)
  - PNEUMONIA [None]
  - RESPIRATORY FAILURE [None]
  - RENAL FAILURE CHRONIC [None]
